FAERS Safety Report 16963042 (Version 1)
Quarter: 2019Q4

REPORT INFORMATION
  Report Type: Report from Study
  Country: US (occurrence: US)
  Receive Date: 20191025
  Receipt Date: 20191025
  Transmission Date: 20200122
  Serious: Yes (Death)
  Sender: FDA-Public Use
  Company Number: US-ASTRAZENECA-2019SF51206

PATIENT
  Sex: Female

DRUGS (11)
  1. MAGNESIUM [Concomitant]
     Active Substance: MAGNESIUM
  2. PANTOPRAZOLE SODIUM. [Concomitant]
     Active Substance: PANTOPRAZOLE SODIUM
  3. VITAMIN D3 [Concomitant]
     Active Substance: CHOLECALCIFEROL
  4. CETIRIZINE HCL [Concomitant]
     Active Substance: CETIRIZINE HYDROCHLORIDE
  5. BIOTIN [Concomitant]
     Active Substance: BIOTIN
  6. IBUPROFEN. [Concomitant]
     Active Substance: IBUPROFEN
  7. SUMATRIPTAN. [Concomitant]
     Active Substance: SUMATRIPTAN
  8. MULTI-VITAMINS [Concomitant]
  9. CALCIUM CARBONATE. [Concomitant]
     Active Substance: CALCIUM CARBONATE
  10. FOLIC ACID. [Concomitant]
     Active Substance: FOLIC ACID
  11. TAGRISSO [Suspect]
     Active Substance: OSIMERTINIB
     Indication: LUNG CARCINOMA CELL TYPE UNSPECIFIED STAGE 0
     Route: 048
     Dates: start: 20171117

REACTIONS (1)
  - Death [Fatal]
